FAERS Safety Report 9773273 (Version 1)
Quarter: 2013Q4

REPORT INFORMATION
  Report Type: Spontaneous
  Country: RU (occurrence: RU)
  Receive Date: 20131219
  Receipt Date: 20131219
  Transmission Date: 20140711
  Serious: Yes (Other)
  Sender: FDA-Public Use
  Company Number: RU-VIIV HEALTHCARE LIMITED-B0954011A

PATIENT
  Sex: 0

DRUGS (4)
  1. COMBIVIR [Suspect]
     Indication: HIV INFECTION
     Route: 065
     Dates: start: 2008, end: 201308
  2. EPIVIR [Suspect]
     Indication: HIV INFECTION
     Route: 065
     Dates: start: 2013
  3. REYATAZ [Suspect]
     Indication: HIV INFECTION
     Route: 065
     Dates: start: 2008
  4. PHOSPHAZIDE [Suspect]
     Indication: HIV INFECTION
     Route: 065
     Dates: start: 2013

REACTIONS (4)
  - Lipodystrophy acquired [Not Recovered/Not Resolved]
  - Anaemia [Recovering/Resolving]
  - Haemoglobin decreased [Recovering/Resolving]
  - General physical health deterioration [Not Recovered/Not Resolved]
